FAERS Safety Report 7622818-4 (Version None)
Quarter: 2011Q3

REPORT INFORMATION
  Report Type: 
  Country: None (occurrence: None)
  Receive Date: 20110719
  Receipt Date: 20110719
  Transmission Date: 20111222
  Serious: Yes (Life-Threatening, Hospitalization)
  Sender: FDA-Public Use
  Company Number: None

PATIENT
  Age: 37 Year
  Sex: Female
  Weight: 66.2252 kg

DRUGS (3)
  1. CISPLATIN [Suspect]
     Dosage: CISPLATIN
     Route: 042
  2. EVEROLIMUS [Suspect]
     Indication: BREAST CANCER
     Dosage: RAD 5MG DAILY
     Dates: start: 20110209, end: 20110302
  3. TAXOL [Suspect]
     Dosage: TAXOL WEEKLY
     Route: 042

REACTIONS (7)
  - SEPTIC SHOCK [None]
  - AXILLARY PAIN [None]
  - NEUTROPENIA [None]
  - OEDEMA PERIPHERAL [None]
  - PYREXIA [None]
  - SEROMA [None]
  - ERYTHEMA [None]
